FAERS Safety Report 20465525 (Version 3)
Quarter: 2022Q1

REPORT INFORMATION
  Report Type: Spontaneous
  Country: PL (occurrence: PL)
  Receive Date: 20220212
  Receipt Date: 20220317
  Transmission Date: 20220424
  Serious: Yes (Disabling, Other)
  Sender: FDA-Public Use
  Company Number: PL-NOVARTISPH-NVSC2022PL017751

PATIENT
  Age: 67 Year
  Sex: Male

DRUGS (1)
  1. BEOVU [Suspect]
     Active Substance: BROLUCIZUMAB-DBLL
     Indication: Neovascular age-related macular degeneration
     Dosage: QMO (1X MONTH) (FORMULATION INJECTION FLUID)
     Route: 031
     Dates: start: 20210614

REACTIONS (4)
  - Macular fibrosis [Not Recovered/Not Resolved]
  - Blindness [Unknown]
  - Visual acuity reduced [Unknown]
  - Eye oedema [Not Recovered/Not Resolved]

NARRATIVE: CASE EVENT DATE: 20211116
